FAERS Safety Report 10619364 (Version 1)
Quarter: 2014Q4

REPORT INFORMATION
  Report Type: Spontaneous
  Country: IR (occurrence: None)
  Receive Date: 20141126
  Receipt Date: 20141126
  Transmission Date: 20150529
  Serious: Yes (Hospitalization)
  Sender: FDA-Public Use
  Company Number: NSR_01707_2014

PATIENT
  Age: 20 Year
  Sex: Female

DRUGS (1)
  1. TRAMADOL (TRAMADOL) [Suspect]
     Active Substance: TRAMADOL
     Indication: PRODUCT USED FOR UNKNOWN INDICATION
     Dosage: [NOT THE PRESCRIBED AMOUNT]
     Route: 048

REACTIONS (4)
  - Poisoning deliberate [None]
  - Apnoea [None]
  - Toxicity to various agents [None]
  - Seizure [None]
